FAERS Safety Report 5126034-X (Version None)
Quarter: 2006Q4

REPORT INFORMATION
  Report Type: 
  Country: None (occurrence: None)
  Receive Date: 20061012
  Receipt Date: 20060712
  Transmission Date: 20070319
  Serious: Yes (Hospitalization, Other)
  Sender: FDA-Public Use
  Company Number: JP-MERCK-0607USA03613

PATIENT
  Age: 77 Year
  Sex: Female

DRUGS (5)
  1. PEPCID RPD [Suspect]
     Indication: GASTRITIS
     Route: 048
     Dates: start: 20060626, end: 20060710
  2. LIPITOR [Concomitant]
     Indication: HYPERLIPIDAEMIA
     Route: 048
     Dates: start: 20050926, end: 20060712
  3. CLARITIN [Concomitant]
     Route: 048
     Dates: start: 20040101
  4. CELESTONE [Concomitant]
     Route: 048
     Dates: start: 20040101
  5. PEPCID [Concomitant]
     Indication: GASTRITIS
     Route: 065
     Dates: start: 20060710

REACTIONS (2)
  - JAUNDICE CHOLESTATIC [None]
  - LIVER DISORDER [None]
